FAERS Safety Report 21910736 (Version 1)
Quarter: 2023Q1

REPORT INFORMATION
  Report Type: Spontaneous
  Country: US (occurrence: US)
  Receive Date: 20230125
  Receipt Date: 20230125
  Transmission Date: 20230417
  Serious: No
  Sender: FDA-Public Use
  Company Number: US-SA-SAC20230123001960

PATIENT
  Age: 44 Year
  Sex: Female

DRUGS (9)
  1. DUPIXENT [Suspect]
     Active Substance: DUPILUMAB
     Indication: Nasal polyps
     Dosage: 1 DF, QOW
     Route: 058
     Dates: start: 20230104
  2. ONDANSETRON [Concomitant]
     Active Substance: ONDANSETRON
  3. ALBUTEROL [Concomitant]
     Active Substance: ALBUTEROL
  4. OMEPRAZOLE [Concomitant]
     Active Substance: OMEPRAZOLE
  5. PEPCID [Concomitant]
     Active Substance: FAMOTIDINE
  6. ZYRTEC [Concomitant]
     Active Substance: CETIRIZINE HYDROCHLORIDE
  7. VITAMIN D3 [Concomitant]
     Active Substance: CHOLECALCIFEROL
  8. BUDESONIDE [Concomitant]
     Active Substance: BUDESONIDE
  9. ADVIL [Concomitant]
     Active Substance: IBUPROFEN

REACTIONS (1)
  - Arthralgia [Unknown]

NARRATIVE: CASE EVENT DATE: 20230119
